FAERS Safety Report 16100626 (Version 1)
Quarter: 2019Q1

REPORT INFORMATION
  Report Type: Spontaneous
  Country: US (occurrence: US)
  Receive Date: 20190321
  Receipt Date: 20190321
  Transmission Date: 20190418
  Serious: No
  Sender: FDA-Public Use
  Company Number: US-BIOMARINAP-US-2019-122455

PATIENT
  Age: 27 Year
  Sex: Female

DRUGS (1)
  1. VIMIZIM [Suspect]
     Active Substance: ELOSULFASE ALFA
     Indication: PRODUCT USED FOR UNKNOWN INDICATION
     Route: 042

REACTIONS (3)
  - Nasal congestion [Unknown]
  - Upper respiratory tract infection [Unknown]
  - Pain [Unknown]

NARRATIVE: CASE EVENT DATE: 20190314
